FAERS Safety Report 19466869 (Version 1)
Quarter: 2021Q2

REPORT INFORMATION
  Report Type: Spontaneous
  Country: US (occurrence: US)
  Receive Date: 20210628
  Receipt Date: 20210628
  Transmission Date: 20210717
  Serious: Yes (Other)
  Sender: FDA-Public Use
  Company Number: US-LUPIN PHARMACEUTICALS INC.-2021-10298

PATIENT
  Age: 43 Year
  Sex: Male

DRUGS (11)
  1. CLONAZEPAM. [Concomitant]
     Active Substance: CLONAZEPAM
     Indication: PRODUCT USED FOR UNKNOWN INDICATION
     Dosage: 2 MILLIGRAM, PRN
     Route: 065
  2. QUETIAPINE FUMARATE. [Suspect]
     Active Substance: QUETIAPINE FUMARATE
     Indication: MOVEMENT DISORDER
     Dosage: UNK
     Route: 065
  3. TRIHEXYPHENIDYL [Suspect]
     Active Substance: TRIHEXYPHENIDYL
     Indication: MOVEMENT DISORDER
     Dosage: UNK
     Route: 065
  4. ZICONOTIDE [Concomitant]
     Active Substance: ZICONOTIDE
     Dosage: 9 MICROGRAM, QD (INTRATHECAL INFUSION PUMP RATE INCREASED)
     Route: 037
     Dates: start: 201812, end: 201903
  5. VORTIOXETINE. [Concomitant]
     Active Substance: VORTIOXETINE
     Indication: PRODUCT USED FOR UNKNOWN INDICATION
     Dosage: 20 MILLIGRAM
     Route: 065
  6. ZICONOTIDE [Concomitant]
     Active Substance: ZICONOTIDE
     Dosage: 7 MICROGRAM, QD (INTRATHECAL INFUSION PUMP RATE INCREASED)
     Route: 037
     Dates: start: 201809
  7. HYDROXYZINE [Concomitant]
     Active Substance: HYDROXYZINE HYDROCHLORIDE
     Indication: PRODUCT USED FOR UNKNOWN INDICATION
     Dosage: 50 MILLIGRAM
     Route: 065
  8. TOPIRAMATE. [Concomitant]
     Active Substance: TOPIRAMATE
     Indication: PRODUCT USED FOR UNKNOWN INDICATION
     Dosage: 100 MILLIGRAM, BID
     Route: 065
  9. ZIPRASIDONE. [Suspect]
     Active Substance: ZIPRASIDONE
     Indication: MOVEMENT DISORDER
     Dosage: UNK
     Route: 065
  10. ZICONOTIDE [Concomitant]
     Active Substance: ZICONOTIDE
     Indication: DIABETIC NEUROPATHY
     Dosage: UNK (INTRATHECAL INFUSION PUMP; INITIAL DOSE NOT STATED)
     Route: 037
     Dates: start: 201703
  11. CYCLOBENZAPRINE. [Concomitant]
     Active Substance: CYCLOBENZAPRINE
     Indication: PRODUCT USED FOR UNKNOWN INDICATION
     Dosage: 10 MILLIGRAM
     Route: 065

REACTIONS (1)
  - Drug ineffective [Unknown]
